FAERS Safety Report 10361154 (Version 6)
Quarter: 2015Q1

REPORT INFORMATION
  Report Type: Report from Study
  Country: DK (occurrence: DK)
  Receive Date: 20140804
  Receipt Date: 20150312
  Transmission Date: 20150720
  Serious: Yes (Hospitalization)
  Sender: FDA-Public Use
  Company Number: DK-ROCHE-1441544

PATIENT
  Age: 70 Year
  Sex: Female
  Weight: 93 kg

DRUGS (14)
  1. VINCRISTINE [Suspect]
     Active Substance: VINCRISTINE
     Indication: DIFFUSE LARGE B-CELL LYMPHOMA
     Dosage: DATE OF LAST DOSE (2 MG) PRIOR TO AE ONSET : 26/JUN/2014.
     Route: 040
     Dates: start: 20140130
  2. DOXORUBICIN [Suspect]
     Active Substance: DOXORUBICIN
     Indication: DIFFUSE LARGE B-CELL LYMPHOMA
     Dosage: DATE OF LAST DOSE (108 MG) PRIOR TO AE ONSET : 26/JUN/2014.
     Route: 042
     Dates: start: 20140130
  3. OBINUTUZUMAB [Suspect]
     Active Substance: OBINUTUZUMAB
     Indication: DIFFUSE LARGE B-CELL LYMPHOMA
     Dosage: DATE OF LAST DOSE (VOLUME : 250 ML, DOSE CONCENTRATION : 1000 MG/ML) PRIOR TO AE ONSET : 26/JUN/2014
     Route: 042
     Dates: start: 20140129
  4. LIRAGLUTIDE [Concomitant]
     Active Substance: LIRAGLUTIDE
     Indication: TYPE 2 DIABETES MELLITUS
     Route: 065
     Dates: start: 20140109
  5. CYCLOCAPRON [Concomitant]
     Indication: HAEMORRHAGE
     Route: 065
     Dates: start: 20140725, end: 20140726
  6. CYCLOPHOSPHAMIDE. [Suspect]
     Active Substance: CYCLOPHOSPHAMIDE
     Indication: DIFFUSE LARGE B-CELL LYMPHOMA
     Dosage: DATE OF LAST DOSE (1575 MG) PRIOR TO AE ONSET : 26/JUN/2014.
     Route: 042
     Dates: start: 20140130
  7. KALIUMCHLORID [Concomitant]
     Route: 065
     Dates: start: 20140306
  8. METFORMIN [Concomitant]
     Active Substance: METFORMIN HYDROCHLORIDE
     Indication: TYPE 2 DIABETES MELLITUS
     Route: 065
     Dates: start: 20140109
  9. PREDNISONE. [Suspect]
     Active Substance: PREDNISONE
     Indication: DIFFUSE LARGE B-CELL LYMPHOMA
     Dosage: DATE OF LAST DOSE (12.5 MG) PRIOR TO AE ONSET : 03/JUL/2014.
     Route: 048
     Dates: start: 20140130
  10. ATORVASTATIN [Concomitant]
     Active Substance: ATORVASTATIN
     Indication: PROPHYLAXIS
     Route: 065
     Dates: start: 20140109
  11. KALIUMCHLORID [Concomitant]
     Indication: HYPOKALAEMIA
     Route: 065
     Dates: start: 20140215
  12. FRAGMIN [Concomitant]
     Active Substance: DALTEPARIN SODIUM
     Indication: ATRIAL FIBRILLATION
     Route: 065
     Dates: start: 20140326, end: 20140727
  13. PANTOPRAZOLE [Concomitant]
     Active Substance: PANTOPRAZOLE SODIUM
     Indication: GASTRIC ULCER
     Route: 065
     Dates: start: 20140109
  14. PIPERACILLIN [Concomitant]
     Active Substance: PIPERACILLIN
     Indication: PYREXIA
     Route: 065
     Dates: start: 20140707, end: 20140710

REACTIONS (2)
  - Fall [Unknown]
  - Wound haemorrhage [Recovered/Resolved]

NARRATIVE: CASE EVENT DATE: 20140724
